FAERS Safety Report 4871053-1 (Version None)
Quarter: 2005Q4

REPORT INFORMATION
  Report Type: 
  Country: None (occurrence: None)
  Receive Date: 20051229
  Receipt Date: 20051223
  Transmission Date: 20060501
  Serious: Yes (Hospitalization)
  Sender: FDA-Public Use
  Company Number: 6019477

PATIENT
  Age: 53 Year
  Sex: Female

DRUGS (3)
  1. BISOPROLOL(5 MG, TABLET)(BISOPROLOL) [Suspect]
     Indication: HYPERTENSION
     Dosage: (5 MG) ORAL
     Route: 048
  2. RAMIPRIL [Suspect]
  3. NEBIVOLOL HCL [Concomitant]

REACTIONS (2)
  - ATRIAL FIBRILLATION [None]
  - DRUG INTOLERANCE [None]
